FAERS Safety Report 7054627-1 (Version None)
Quarter: 2010Q4

REPORT INFORMATION
  Report Type: 
  Country: None (occurrence: None)
  Receive Date: 20101020
  Receipt Date: 20101013
  Transmission Date: 20110411
  Serious: Yes (Other)
  Sender: FDA-Public Use
  Company Number: US-PFIZER INC-2010130643

PATIENT
  Sex: Female
  Weight: 54 kg

DRUGS (1)
  1. DEPO-SUBQ PROVERA 104 [Suspect]
     Dosage: UNK
     Route: 058
     Dates: start: 20100624

REACTIONS (11)
  - ACNE [None]
  - ASTHENIA [None]
  - DIZZINESS [None]
  - DYSMENORRHOEA [None]
  - FATIGUE [None]
  - HEADACHE [None]
  - HOT FLUSH [None]
  - INSOMNIA [None]
  - MENOMETRORRHAGIA [None]
  - MUSCLE SPASMS [None]
  - VARICOSE VEIN [None]
